FAERS Safety Report 9948265 (Version 1)
Quarter: 2014Q1

REPORT INFORMATION
  Report Type: Report from Study
  Country: US (occurrence: US)
  Receive Date: 20140303
  Receipt Date: 20140303
  Transmission Date: 20141002
  Serious: No
  Sender: FDA-Public Use
  Company Number: US-ABBVIE-13P-163-1059207-00

PATIENT
  Age: 28 Year
  Sex: Female

DRUGS (3)
  1. HUMIRA [Suspect]
     Indication: CROHN^S DISEASE
     Dates: start: 20130118
  2. ESTROSTEP [Concomitant]
     Indication: CONTRACEPTION
     Dosage: DAILY BIRTH CONTROL WITH PLACEBO WEEK
  3. B12 [Concomitant]
     Indication: VITAMIN B12 DECREASED
     Dosage: WEEKLY

REACTIONS (1)
  - Injection site reaction [Recovering/Resolving]
